FAERS Safety Report 24824576 (Version 2)
Quarter: 2025Q1

REPORT INFORMATION
  Report Type: Spontaneous
  Country: PT (occurrence: PT)
  Receive Date: 20250109
  Receipt Date: 20250124
  Transmission Date: 20250409
  Serious: Yes (Life-Threatening, Hospitalization)
  Sender: TEVA
  Company Number: PT-TEVA-VS-3282590

PATIENT
  Age: 66 Year
  Sex: Male

DRUGS (6)
  1. ZOLPIDEM [Suspect]
     Active Substance: ZOLPIDEM TARTRATE
     Indication: Depressive symptom
     Route: 065
  2. ZOLPIDEM [Suspect]
     Active Substance: ZOLPIDEM TARTRATE
     Indication: Depressive symptom
     Route: 065
  3. AMITRIPTYLINE [Suspect]
     Active Substance: AMITRIPTYLINE
     Indication: Depressive symptom
     Route: 065
  4. AMITRIPTYLINE [Suspect]
     Active Substance: AMITRIPTYLINE
     Indication: Depressive symptom
     Route: 065
  5. BUSPIRONE [Suspect]
     Active Substance: BUSPIRONE HYDROCHLORIDE
     Indication: Depressive symptom
     Route: 065
  6. BUSPIRONE [Suspect]
     Active Substance: BUSPIRONE HYDROCHLORIDE
     Indication: Depressive symptom
     Route: 065

REACTIONS (6)
  - Poisoning deliberate [Recovering/Resolving]
  - Drug interaction [Recovering/Resolving]
  - Respiratory failure [Recovered/Resolved]
  - Hyperlactacidaemia [Unknown]
  - Hypoxia [Recovered/Resolved]
  - Serotonin syndrome [Recovering/Resolving]
